FAERS Safety Report 7280821-0 (Version None)
Quarter: 2010Q4

REPORT INFORMATION
  Report Type: 
  Country: None (occurrence: None)
  Receive Date: 20101221
  Receipt Date: 20100526
  Transmission Date: 20110411
  Serious: Yes (Other)
  Sender: FDA-Public Use
  Company Number: WWISSUE-441

PATIENT
  Age: 16 Year
  Sex: Female

DRUGS (1)
  1. PREDNISONE [Suspect]
     Indication: ACNE
     Dosage: 10MG
     Dates: start: 20100501

REACTIONS (4)
  - ANGER [None]
  - CUSHINGOID [None]
  - INSOMNIA [None]
  - WEIGHT INCREASED [None]
